FAERS Safety Report 7982166-X (Version None)
Quarter: 2011Q4

REPORT INFORMATION
  Report Type: 
  Country: None (occurrence: None)
  Receive Date: 20111215
  Receipt Date: 20111206
  Transmission Date: 20120403
  Serious: Yes (Other)
  Sender: FDA-Public Use
  Company Number: JP-SANOFI-AVENTIS-2011SA077489

PATIENT
  Age: 58 Year
  Sex: Female

DRUGS (3)
  1. HUMALOG [Suspect]
     Route: 065
  2. LANTUS [Suspect]
     Route: 065
  3. HUMALOG [Suspect]
     Route: 065

REACTIONS (2)
  - EYELID PTOSIS [None]
  - DIPLOPIA [None]
